FAERS Safety Report 25643749 (Version 1)
Quarter: 2025Q3

REPORT INFORMATION
  Report Type: Spontaneous
  Country: US (occurrence: US)
  Receive Date: 20250805
  Receipt Date: 20250805
  Transmission Date: 20251021
  Serious: Yes (Death, Hospitalization)
  Sender: MYLAN
  Company Number: US-MYLANLABS-2025M1065581

PATIENT
  Age: 39 Year
  Sex: Male

DRUGS (24)
  1. DOXORUBICIN [Suspect]
     Active Substance: DOXORUBICIN
     Indication: Kaposi sarcoma inflammatory cytokine syndrome
  2. DOXORUBICIN [Suspect]
     Active Substance: DOXORUBICIN
     Route: 065
  3. DOXORUBICIN [Suspect]
     Active Substance: DOXORUBICIN
     Route: 065
  4. DOXORUBICIN [Suspect]
     Active Substance: DOXORUBICIN
  5. DEXAMETHASONE [Suspect]
     Active Substance: DEXAMETHASONE
     Indication: Kaposi sarcoma inflammatory cytokine syndrome
     Route: 065
  6. DEXAMETHASONE [Suspect]
     Active Substance: DEXAMETHASONE
  7. DEXAMETHASONE [Suspect]
     Active Substance: DEXAMETHASONE
  8. DEXAMETHASONE [Suspect]
     Active Substance: DEXAMETHASONE
     Route: 065
  9. DEXAMETHASONE [Suspect]
     Active Substance: DEXAMETHASONE
     Route: 065
  10. DEXAMETHASONE [Suspect]
     Active Substance: DEXAMETHASONE
  11. DEXAMETHASONE [Suspect]
     Active Substance: DEXAMETHASONE
  12. DEXAMETHASONE [Suspect]
     Active Substance: DEXAMETHASONE
     Route: 065
  13. GANCICLOVIR [Suspect]
     Active Substance: GANCICLOVIR
     Indication: Cytomegalovirus viraemia
  14. GANCICLOVIR [Suspect]
     Active Substance: GANCICLOVIR
     Route: 065
  15. GANCICLOVIR [Suspect]
     Active Substance: GANCICLOVIR
     Route: 065
  16. GANCICLOVIR [Suspect]
     Active Substance: GANCICLOVIR
  17. RITUXIMAB [Suspect]
     Active Substance: RITUXIMAB
     Indication: Kaposi sarcoma inflammatory cytokine syndrome
  18. RITUXIMAB [Suspect]
     Active Substance: RITUXIMAB
     Route: 065
  19. RITUXIMAB [Suspect]
     Active Substance: RITUXIMAB
     Route: 065
  20. RITUXIMAB [Suspect]
     Active Substance: RITUXIMAB
  21. TOCILIZUMAB [Suspect]
     Active Substance: TOCILIZUMAB
     Indication: Kaposi sarcoma inflammatory cytokine syndrome
  22. TOCILIZUMAB [Suspect]
     Active Substance: TOCILIZUMAB
     Route: 065
  23. TOCILIZUMAB [Suspect]
     Active Substance: TOCILIZUMAB
     Route: 065
  24. TOCILIZUMAB [Suspect]
     Active Substance: TOCILIZUMAB

REACTIONS (2)
  - Drug ineffective [Fatal]
  - Off label use [Unknown]
